FAERS Safety Report 14063029 (Version 1)
Quarter: 2017Q4

REPORT INFORMATION
  Report Type: Report from Study
  Country: US (occurrence: US)
  Receive Date: 20171009
  Receipt Date: 20171009
  Transmission Date: 20180321
  Serious: Yes (Other)
  Sender: FDA-Public Use
  Company Number: US-BAYER-2017-187199

PATIENT
  Age: 51 Year
  Sex: Male
  Weight: 105.22 kg

DRUGS (1)
  1. STIVARGA [Suspect]
     Active Substance: REGORAFENIB
     Indication: RECTAL CANCER
     Dosage: 160 MG, QD FOR 21/28 DAYS
     Route: 048
     Dates: start: 20170726, end: 2017

REACTIONS (1)
  - Blood urine present [Recovered/Resolved]

NARRATIVE: CASE EVENT DATE: 2017
